FAERS Safety Report 10886228 (Version 5)
Quarter: 2015Q2

REPORT INFORMATION
  Report Type: Report from Study
  Country: US (occurrence: US)
  Receive Date: 20150304
  Receipt Date: 20150526
  Transmission Date: 20150821
  Serious: Yes (Hospitalization)
  Sender: FDA-Public Use
  Company Number: US-SA-2013SA127163

PATIENT
  Age: 36 Year
  Sex: Female

DRUGS (3)
  1. AUBAGIO [Suspect]
     Active Substance: TERIFLUNOMIDE
     Indication: MULTIPLE SCLEROSIS
     Route: 048
     Dates: start: 20150315
  2. AUBAGIO [Suspect]
     Active Substance: TERIFLUNOMIDE
     Indication: MULTIPLE SCLEROSIS
     Route: 048
     Dates: start: 20131113, end: 20141208
  3. AUBAGIO [Suspect]
     Active Substance: TERIFLUNOMIDE
     Indication: MULTIPLE SCLEROSIS
     Route: 048
     Dates: start: 20141208, end: 20150101

REACTIONS (9)
  - Cerebral haemorrhage [Unknown]
  - Ocular hyperaemia [Not Recovered/Not Resolved]
  - Skin discolouration [Unknown]
  - Dry skin [Unknown]
  - Road traffic accident [Unknown]
  - Rib fracture [Unknown]
  - Eye swelling [Not Recovered/Not Resolved]
  - Craniocerebral injury [Unknown]
  - Pelvic fracture [Unknown]

NARRATIVE: CASE EVENT DATE: 20131201
